FAERS Safety Report 7414346-6 (Version None)
Quarter: 2011Q2

REPORT INFORMATION
  Report Type: 
  Country: None (occurrence: None)
  Receive Date: 20110407
  Receipt Date: 20110328
  Transmission Date: 20111010
  Serious: Yes (Death)
  Sender: FDA-Public Use
  Company Number: DAV-AE-MTX-11-015

PATIENT
  Age: 36 Year
  Sex: Male

DRUGS (4)
  1. ACITRETIN [Concomitant]
  2. CYCLOSPORINE [Concomitant]
  3. METHOTREXATE [Suspect]
     Indication: PSORIASIS
     Dosage: 20MG/25MG/WK
  4. ETANERCEPT [Concomitant]

REACTIONS (3)
  - LYMPHOPENIA [None]
  - MYCOSIS FUNGOIDES [None]
  - CELLULITIS [None]
